FAERS Safety Report 18627814 (Version 2)
Quarter: 2021Q1

REPORT INFORMATION
  Report Type: Report from Study
  Country: US (occurrence: US)
  Receive Date: 20201217
  Receipt Date: 20210310
  Transmission Date: 20210419
  Serious: Yes (Life-Threatening, Other)
  Sender: FDA-Public Use
  Company Number: US-TAKEDA-US201827338

PATIENT
  Age: 45 Year
  Sex: Female

DRUGS (12)
  1. PARATHYROID HORMONE [Suspect]
     Active Substance: PARATHYROID HORMONE
     Dosage: 75 MICROGRAM, QD
     Route: 058
  2. PARATHYROID HORMONE [Suspect]
     Active Substance: PARATHYROID HORMONE
     Dosage: 25 MICROGRAM, QD
     Route: 058
     Dates: start: 20210305
  3. PARATHYROID HORMONE [Suspect]
     Active Substance: PARATHYROID HORMONE
     Indication: HYPOPARATHYROIDISM
     Dosage: 50 MICROGRAM, QD
     Route: 058
     Dates: start: 20180528
  4. PARATHYROID HORMONE [Suspect]
     Active Substance: PARATHYROID HORMONE
     Dosage: 25 MICROGRAM, QD
     Route: 058
     Dates: start: 20210305
  5. PARATHYROID HORMONE [Suspect]
     Active Substance: PARATHYROID HORMONE
     Dosage: 75 MICROGRAM, QD
     Route: 058
  6. PARATHYROID HORMONE [Suspect]
     Active Substance: PARATHYROID HORMONE
     Indication: HYPOPARATHYROIDISM
     Dosage: 50 MICROGRAM, QD
     Route: 058
     Dates: start: 20180528
  7. PARATHYROID HORMONE [Suspect]
     Active Substance: PARATHYROID HORMONE
     Dosage: 75 MICROGRAM, QD
     Route: 058
  8. PARATHYROID HORMONE [Suspect]
     Active Substance: PARATHYROID HORMONE
     Dosage: 25 MICROGRAM, QD
     Route: 058
     Dates: start: 20210305
  9. PARATHYROID HORMONE [Suspect]
     Active Substance: PARATHYROID HORMONE
     Dosage: 50 MICROGRAM, QD
     Route: 058
     Dates: start: 20210305
  10. PARATHYROID HORMONE [Suspect]
     Active Substance: PARATHYROID HORMONE
     Dosage: 50 MICROGRAM, QD
     Route: 058
     Dates: start: 20210305
  11. PARATHYROID HORMONE [Suspect]
     Active Substance: PARATHYROID HORMONE
     Dosage: 50 MICROGRAM, QD
     Route: 058
     Dates: start: 20210305
  12. PARATHYROID HORMONE [Suspect]
     Active Substance: PARATHYROID HORMONE
     Indication: HYPOPARATHYROIDISM
     Dosage: 50 MICROGRAM, QD
     Route: 058
     Dates: start: 20180528

REACTIONS (8)
  - Condition aggravated [Unknown]
  - Asthma [Unknown]
  - Fatigue [Unknown]
  - Post procedural hypothyroidism [Unknown]
  - Blood calcium abnormal [Unknown]
  - Paraesthesia [Not Recovered/Not Resolved]
  - Gastric disorder [Unknown]
  - Blood calcium decreased [Not Recovered/Not Resolved]

NARRATIVE: CASE EVENT DATE: 20180705
